FAERS Safety Report 5720825-X (Version None)
Quarter: 2008Q2

REPORT INFORMATION
  Report Type: 
  Country: None (occurrence: None)
  Receive Date: 20080425
  Receipt Date: 20080425
  Transmission Date: 20081010
  Serious: Yes (Other)
  Sender: FDA-Public Use
  Company Number: None

PATIENT
  Age: 9 Year
  Sex: Male
  Weight: 28.5766 kg

DRUGS (2)
  1. SINGULAIR [Suspect]
     Indication: COUGH
     Dosage: ONE ONCE PER DAY PO
     Route: 048
     Dates: start: 20080418, end: 20080419
  2. SINGULAIR [Suspect]
     Indication: SINUSITIS
     Dosage: ONE ONCE PER DAY PO
     Route: 048
     Dates: start: 20080418, end: 20080419

REACTIONS (1)
  - URTICARIA [None]
